FAERS Safety Report 13063275 (Version 1)
Quarter: 2016Q4

REPORT INFORMATION
  Report Type: Report from Study
  Country: JP (occurrence: JP)
  Receive Date: 20161227
  Receipt Date: 20161227
  Transmission Date: 20170207
  Serious: Yes (Death)
  Sender: FDA-Public Use
  Company Number: JP-ACCORD-046797

PATIENT
  Age: 64 Year
  Sex: Male

DRUGS (5)
  1. FLUDARABINE [Concomitant]
     Active Substance: FLUDARABINE PHOSPHATE
     Indication: PRIMARY MYELOFIBROSIS
     Dosage: FOR 6 DAYS
  2. ANTITHYMOCYTE IMMUNOGLOBULIN [Concomitant]
     Active Substance: THYMOCYTE IMMUNE GLOBULIN NOS
     Indication: PRIMARY MYELOFIBROSIS
  3. METHOTREXATE. [Suspect]
     Active Substance: METHOTREXATE
     Indication: PROPHYLAXIS AGAINST GRAFT VERSUS HOST DISEASE
     Dosage: THE DOSE OF SHORT TERM MTX WAS 15 MG/M2 ON DAY 1, AND 10 MG/M2 ON DAYS 3, 6, AND 11 ML
  4. CICLOSPORIN [Suspect]
     Active Substance: CYCLOSPORINE
     Indication: PROPHYLAXIS AGAINST GRAFT VERSUS HOST DISEASE
     Dosage: STARTED ON DAY -1 AT A DOSE OF 3 MG/KG/DAY BY 24 HOUR CONTINUOUS INFUSION
  5. BUSULFAN. [Concomitant]
     Active Substance: BUSULFAN
     Indication: PRIMARY MYELOFIBROSIS
     Dosage: ONCE DAILY FOR 2DAYS
     Route: 042

REACTIONS (1)
  - Idiopathic pneumonia syndrome [Fatal]
